FAERS Safety Report 24976840 (Version 1)
Quarter: 2025Q1

REPORT INFORMATION
  Report Type: Spontaneous
  Country: CA (occurrence: CA)
  Receive Date: 20250217
  Receipt Date: 20250217
  Transmission Date: 20250409
  Serious: Yes (Death, Other)
  Sender: BAYER HEALTHCARE PHARMACEUTICALS INC.
  Company Number: CA-BAYER-2025A020702

PATIENT
  Age: 55 Year
  Sex: Female

DRUGS (11)
  1. CIPROFLOXACIN [Suspect]
     Active Substance: CIPROFLOXACIN
     Indication: Infection
  2. TAVNEOS [Suspect]
     Active Substance: AVACOPAN
     Indication: Lung disorder
     Dosage: 30 MG, BID
     Route: 048
  3. TAVNEOS [Suspect]
     Active Substance: AVACOPAN
     Indication: Granulomatosis with polyangiitis
  4. ERTAPENEM [Suspect]
     Active Substance: ERTAPENEM
     Indication: Infection
  5. LINEZOLID [Suspect]
     Active Substance: LINEZOLID
     Indication: Infection
  6. RITUXIMAB [Concomitant]
     Active Substance: RITUXIMAB
     Indication: Lung disorder
     Dosage: 1 G, BID
     Route: 048
  7. RITUXIMAB [Concomitant]
     Active Substance: RITUXIMAB
     Indication: Granulomatosis with polyangiitis
  8. FLUCONAZOLE [Concomitant]
     Active Substance: FLUCONAZOLE
  9. HIZENTRA [Concomitant]
     Active Substance: HUMAN IMMUNOGLOBULIN G
     Indication: Immune system disorder
  10. HIZENTRA [Concomitant]
     Active Substance: HUMAN IMMUNOGLOBULIN G
     Indication: Granulomatosis with polyangiitis
  11. PREDNISONE [Concomitant]
     Active Substance: PREDNISONE
     Indication: Granulomatosis with polyangiitis

REACTIONS (12)
  - Seizure [Fatal]
  - Cardiac arrest [Fatal]
  - Aspiration [Fatal]
  - Hypoxia [Fatal]
  - Infection [Fatal]
  - Fungal infection [Fatal]
  - Cytomegalovirus infection [Fatal]
  - Staphylococcal infection [Fatal]
  - Pseudomonas infection [Fatal]
  - Raoultella ornithinolytica infection [Fatal]
  - Serratia infection [Fatal]
  - Off label use [Fatal]
